FAERS Safety Report 8366922-4 (Version None)
Quarter: 2012Q2

REPORT INFORMATION
  Report Type: 
  Country: None (occurrence: None)
  Receive Date: 20120515
  Receipt Date: 20120515
  Transmission Date: 20120825
  Serious: No
  Sender: FDA-Public Use
  Company Number: None

PATIENT
  Age: 64 Year
  Sex: Female

DRUGS (12)
  1. METFORMIN HCL [Concomitant]
  2. HYDROCODONE BITARTRATE AND ACETAMINOPHEN [Concomitant]
  3. GLIPIZIDE [Concomitant]
  4. REVLIMID [Suspect]
     Indication: MULTIPLE MYELOMA
     Dosage: REVLIMID 10 MG DAILY ORALLY
     Route: 048
     Dates: start: 20120501
  5. REGULAR INSULIN [Concomitant]
  6. NORTRIPTYLINE HCL [Concomitant]
  7. ASPIRIN [Concomitant]
  8. LISINOPRIL [Concomitant]
  9. ALLOPURINOL [Concomitant]
  10. M.V.I. [Concomitant]
  11. OMEPRAZOLE [Concomitant]
  12. PRAVASTATIN [Concomitant]

REACTIONS (10)
  - DYSURIA [None]
  - FATIGUE [None]
  - PAIN [None]
  - ABDOMINAL PAIN [None]
  - COUGH [None]
  - PYREXIA [None]
  - PRURITUS [None]
  - OEDEMA PERIPHERAL [None]
  - ERYTHEMA [None]
  - ACCIDENT [None]
